FAERS Safety Report 8431691-6 (Version None)
Quarter: 2012Q2

REPORT INFORMATION
  Report Type: 
  Country: None (occurrence: None)
  Receive Date: 20120613
  Receipt Date: 20120604
  Transmission Date: 20120825
  Serious: Yes (Other)
  Sender: FDA-Public Use
  Company Number: US-JNJFOC-20120403359

PATIENT
  Sex: Female

DRUGS (6)
  1. TOPROL-XL [Concomitant]
  2. HYZAAR [Concomitant]
  3. LEVAQUIN [Suspect]
     Indication: BRONCHITIS
     Route: 048
     Dates: start: 20100614, end: 20100624
  4. MEDROL [Suspect]
     Indication: BRONCHITIS
     Route: 065
     Dates: start: 20100614, end: 20100624
  5. ALLEGRA [Concomitant]
  6. ADVAIR DISKUS 100/50 [Concomitant]
     Indication: PRODUCT USED FOR UNKNOWN INDICATION
     Dosage: 500/50,  PUFF TWICE A DAY
     Route: 065
     Dates: start: 20100614, end: 20100624

REACTIONS (4)
  - JOINT STIFFNESS [None]
  - GAIT DISTURBANCE [None]
  - TENOSYNOVITIS [None]
  - PAIN [None]
